FAERS Safety Report 4474373-8 (Version None)
Quarter: 2004Q4

REPORT INFORMATION
  Report Type: 
  Country: None (occurrence: None)
  Receive Date: 20041014
  Receipt Date: 20041007
  Transmission Date: 20050328
  Serious: Yes (Life-Threatening, Hospitalization)
  Sender: FDA-Public Use
  Company Number: US-MERCK-0410USA01078

PATIENT
  Age: 81 Year
  Sex: Female

DRUGS (14)
  1. PACERONE [Concomitant]
     Route: 065
  2. ASPIRIN [Concomitant]
     Route: 065
  3. PLAVIX [Concomitant]
     Route: 065
  4. PREMARIN [Concomitant]
     Route: 065
  5. LASIX [Concomitant]
     Route: 065
  6. SYNTHROID [Concomitant]
     Route: 065
  7. TOPROL-XL [Concomitant]
     Route: 065
  8. PRILOSEC [Concomitant]
     Route: 065
  9. ALTACE [Concomitant]
     Route: 065
  10. ZANTAC [Concomitant]
     Route: 065
  11. VIOXX [Suspect]
     Indication: ARTHRITIS
     Route: 048
     Dates: start: 20030101, end: 20040201
  12. VIOXX [Suspect]
     Route: 048
     Dates: end: 20040930
  13. VERAPAMIL [Concomitant]
     Route: 065
  14. WARFARIN [Concomitant]
     Route: 065

REACTIONS (4)
  - CARDIAC FAILURE CONGESTIVE [None]
  - HYPOTENSION [None]
  - MYOCARDIAL INFARCTION [None]
  - THROMBOSIS [None]
